FAERS Safety Report 16907578 (Version 2)
Quarter: 2019Q4

REPORT INFORMATION
  Report Type: Spontaneous
  Country: ES (occurrence: ES)
  Receive Date: 20191011
  Receipt Date: 20191122
  Transmission Date: 20200122
  Serious: No
  Sender: FDA-Public Use
  Company Number: ES-ALEMBIC PHARMACUETICALS LIMITED-2019SCAL000744

PATIENT

DRUGS (9)
  1. HALOPERIDOL. [Concomitant]
     Active Substance: HALOPERIDOL
     Indication: SCHIZOPHRENIA
     Dosage: 4 MILLIGRAM, QD
  2. ATROPINE. [Concomitant]
     Active Substance: ATROPINE
     Indication: ANAESTHESIA
     Dosage: 0.5 MILLIGRAM
  3. SUCCINYL CHOLINE [Concomitant]
     Active Substance: SUCCINYLCHOLINE
     Indication: ANAESTHESIA
     Dosage: 50 MILLIGRAM
  4. QUETIAPINE FUMARATE. [Suspect]
     Active Substance: QUETIAPINE FUMARATE
     Indication: PRODUCT USED FOR UNKNOWN INDICATION
     Dosage: UNK
     Route: 065
  5. OLANZAPINE. [Concomitant]
     Active Substance: OLANZAPINE
     Indication: PRODUCT USED FOR UNKNOWN INDICATION
  6. THIOPENTAL [THIOPENTAL SODIUM] [Concomitant]
     Indication: ANAESTHESIA
     Dosage: 200 MILLIGRAM
  7. AMISULPRIDE [Concomitant]
     Active Substance: AMISULPRIDE
     Indication: PRODUCT USED FOR UNKNOWN INDICATION
     Dosage: UNK
  8. OTSUKA ABILIFY [Concomitant]
     Active Substance: ARIPIPRAZOLE
     Indication: SCHIZOPHRENIA
     Dosage: 10 MILLIGRAM, OD
  9. OTSUKA ABILIFY [Concomitant]
     Active Substance: ARIPIPRAZOLE
     Dosage: 30 MILLIGRAM, OD

REACTIONS (4)
  - Drug intolerance [Unknown]
  - Somnolence [Recovering/Resolving]
  - Maternal exposure during pregnancy [Unknown]
  - Sedation [Recovering/Resolving]
